FAERS Safety Report 16365851 (Version 3)
Quarter: 2019Q3

REPORT INFORMATION
  Report Type: Report from Study
  Country: JP (occurrence: JP)
  Receive Date: 20190529
  Receipt Date: 20190724
  Transmission Date: 20191004
  Serious: Yes (Death)
  Sender: FDA-Public Use
  Company Number: JP-BEH-2019102901

PATIENT
  Age: 81 Year
  Sex: Female
  Weight: 45 kg

DRUGS (13)
  1. WARFARIN POTASSIUM [Concomitant]
     Active Substance: WARFARIN POTASSIUM
     Indication: ANTICOAGULANT THERAPY
  2. LYRICA [Concomitant]
     Active Substance: PREGABALIN
     Dosage: UNK
     Route: 048
     Dates: end: 20180328
  3. E KEPPRA [Concomitant]
     Active Substance: LEVETIRACETAM
     Dosage: UNK
     Route: 048
     Dates: start: 20180403, end: 20180409
  4. BERIPLEX P/N [Suspect]
     Active Substance: COAGULATION FACTOR IX HUMAN\COAGULATION FACTOR VII HUMAN\COAGULATION FACTOR X HUMAN\PROTEIN C\PROTEIN S HUMAN\PROTHROMBIN
     Indication: HAEMORRHAGE
     Dosage: 1000 INTERNATIONAL UNIT
     Route: 042
     Dates: start: 20180328
  5. PERDIPINE [Concomitant]
     Active Substance: NICARDIPINE HYDROCHLORIDE
     Dosage: UNK
     Route: 065
     Dates: start: 20180328, end: 20180402
  6. FAMOTIDINE. [Concomitant]
     Active Substance: FAMOTIDINE
     Dosage: UNK
     Route: 065
     Dates: start: 20180328, end: 20180402
  7. VESICARE [Concomitant]
     Active Substance: SOLIFENACIN SUCCINATE
     Dosage: UNK
     Route: 048
     Dates: end: 20180328
  8. KAYTWO N [Concomitant]
     Active Substance: MENATETRENONE
     Indication: VITAMIN K
  9. AMLODIN [Concomitant]
     Active Substance: AMLODIPINE BESYLATE
     Dosage: UNK
     Route: 048
     Dates: start: 20180403, end: 20180409
  10. ALEVIATIN                          /00017402/ [Concomitant]
     Active Substance: PHENYTOIN SODIUM
     Dosage: UNK
     Route: 065
     Dates: start: 20180328, end: 20180402
  11. BERIPLEX P/N [Suspect]
     Active Substance: COAGULATION FACTOR IX HUMAN\COAGULATION FACTOR VII HUMAN\COAGULATION FACTOR X HUMAN\PROTEIN C\PROTEIN S HUMAN\PROTHROMBIN
     Indication: HAEMORRHAGE
     Dosage: 1000 INTERNATIONAL UNIT
     Route: 042
     Dates: start: 20180328
  12. KAYTWO N [Concomitant]
     Active Substance: MENATETRENONE
     Indication: PROCOAGULANT THERAPY
     Dosage: 10 MG, UNK
     Route: 065
     Dates: start: 20180328, end: 20180329
  13. WARFARIN POTASSIUM [Concomitant]
     Active Substance: WARFARIN POTASSIUM
     Indication: ATRIAL FIBRILLATION
     Dosage: 2.5 MG, UNK
     Route: 048

REACTIONS (2)
  - Carotid aneurysm rupture [Fatal]
  - Subarachnoid haemorrhage [Fatal]

NARRATIVE: CASE EVENT DATE: 20180409
